FAERS Safety Report 23883107 (Version 1)
Quarter: 2024Q2

REPORT INFORMATION
  Report Type: Spontaneous
  Country: TW (occurrence: TW)
  Receive Date: 20240522
  Receipt Date: 20240522
  Transmission Date: 20240716
  Serious: Yes (Death, Hospitalization, Other)
  Sender: FDA-Public Use
  Company Number: TW-SUN PHARMACEUTICAL INDUSTRIES LTD-2024R1-441926

PATIENT
  Age: 74 Year
  Sex: Male

DRUGS (1)
  1. AMLODIPINE\HYDROCHLOROTHIAZIDE\VALSARTAN [Suspect]
     Active Substance: AMLODIPINE\HYDROCHLOROTHIAZIDE\VALSARTAN
     Indication: Hypertension
     Dosage: 10/160/25 MG
     Route: 065

REACTIONS (4)
  - Drug level increased [Fatal]
  - BRASH syndrome [Fatal]
  - Cardiogenic shock [Fatal]
  - Overdose [Fatal]
